FAERS Safety Report 19896303 (Version 1)
Quarter: 2021Q3

REPORT INFORMATION
  Report Type: Spontaneous
  Country: BE (occurrence: BE)
  Receive Date: 20210929
  Receipt Date: 20210929
  Transmission Date: 20211014
  Serious: Yes (Death, Hospitalization, Other)
  Sender: FDA-Public Use
  Company Number: BE-PFIZER INC-202101226134

PATIENT
  Age: 8 Year
  Sex: Male

DRUGS (3)
  1. CRIZOTINIB [Suspect]
     Active Substance: CRIZOTINIB
     Dosage: 280 MG/M2, 2X/DAY
     Route: 045
     Dates: start: 20190228
  2. CRIZOTINIB [Suspect]
     Active Substance: CRIZOTINIB
     Indication: ANAPLASTIC LARGE-CELL LYMPHOMA
     Dosage: 280 MG/M2, 2X/DAY
     Route: 048
     Dates: start: 20190215, end: 20190228
  3. VINBLASTINE [Suspect]
     Active Substance: VINBLASTINE
     Indication: ANAPLASTIC LARGE-CELL LYMPHOMA
     Dosage: 6 MG/M2, WEEKLY
     Route: 042
     Dates: start: 20190228

REACTIONS (13)
  - Infection [Unknown]
  - Neoplasm progression [Unknown]
  - Bronchopulmonary aspergillosis [Unknown]
  - Bacteraemia [Unknown]
  - Off label use [Unknown]
  - Renal failure [Unknown]
  - Renal haemorrhage [Unknown]
  - Neutropenic colitis [Unknown]
  - Decreased appetite [Unknown]
  - Skin lesion [Unknown]
  - Cerebral fungal infection [Unknown]
  - Mucosal inflammation [Unknown]
  - Myelosuppression [Unknown]

NARRATIVE: CASE EVENT DATE: 2019
